FAERS Safety Report 10442496 (Version 2)
Quarter: 2014Q3

REPORT INFORMATION
  Report Type: Spontaneous
  Country: US (occurrence: None)
  Receive Date: 20140908
  Receipt Date: 20140923
  Transmission Date: 20150326
  Serious: Yes (Other)
  Sender: FDA-Public Use
  Company Number: 2014VER00194

PATIENT
  Age: 18 Year
  Sex: Male
  Weight: 86.2 kg

DRUGS (1)
  1. MYORISAN [Suspect]
     Active Substance: ISOTRETINOIN
     Indication: ACNE
     Route: 048
     Dates: start: 20140503, end: 2014

REACTIONS (11)
  - Disturbance in attention [None]
  - Feeling abnormal [None]
  - Anger [None]
  - Erectile dysfunction [None]
  - Dry skin [None]
  - Crying [None]
  - Penile erythema [None]
  - Dermatitis [None]
  - Dysuria [None]
  - Headache [None]
  - Mood swings [None]

NARRATIVE: CASE EVENT DATE: 2014
